FAERS Safety Report 23344107 (Version 1)
Quarter: 2023Q4

REPORT INFORMATION
  Report Type: Report from Study
  Country: US (occurrence: US)
  Receive Date: 20231227
  Receipt Date: 20231227
  Transmission Date: 20240110
  Serious: Yes (Other)
  Sender: FDA-Public Use
  Company Number: US-ABBVIE-5559923

PATIENT
  Sex: Female

DRUGS (1)
  1. RINVOQ [Suspect]
     Active Substance: UPADACITINIB
     Indication: Psoriatic arthropathy
     Route: 048
     Dates: start: 20230907

REACTIONS (5)
  - Ankle fracture [Recovering/Resolving]
  - Rash pruritic [Unknown]
  - Flatulence [Unknown]
  - Psoriatic arthropathy [Unknown]
  - Rash [Unknown]

NARRATIVE: CASE EVENT DATE: 20230101
